FAERS Safety Report 9922207 (Version 4)
Quarter: 2014Q4

REPORT INFORMATION
  Report Type: Spontaneous
  Country: GB (occurrence: GB)
  Receive Date: 20140225
  Receipt Date: 20141009
  Transmission Date: 20150529
  Serious: Yes (Other)
  Sender: FDA-Public Use
  Company Number: GB-WATSON-2014-02964

PATIENT
  Age: 57 Year
  Sex: Female

DRUGS (2)
  1. ANDREWS LIVER SALT [Suspect]
     Active Substance: ANHYDROUS CITRIC ACID\BICARBONATE ION\MAGNESIUM CATION
     Indication: SEIZURE
     Dosage: UNK
     Route: 065
  2. LAMOTRIGINE. [Suspect]
     Active Substance: LAMOTRIGINE
     Indication: CONVULSION PROPHYLAXIS
     Dosage: 100 MG, BID
     Route: 048
     Dates: start: 2009

REACTIONS (4)
  - Hyperaemia [Unknown]
  - Therapeutic response unexpected [Unknown]
  - Seizure [Unknown]
  - Circulatory collapse [Unknown]
